FAERS Safety Report 5946018-9 (Version None)
Quarter: 2008Q4

REPORT INFORMATION
  Report Type: 
  Country: None (occurrence: None)
  Receive Date: 20081106
  Receipt Date: 20081031
  Transmission Date: 20090506
  Serious: Yes (Hospitalization)
  Sender: FDA-Public Use
  Company Number: 2008002762

PATIENT
  Age: 61 Year
  Sex: Female

DRUGS (3)
  1. ERLOTINIB [Suspect]
     Indication: NON-SMALL CELL LUNG CANCER
     Dosage: 150 MG, QD, ORAL
     Route: 048
     Dates: start: 20070719
  2. CEFUROXIME [Concomitant]
  3. BEVACIZUMAB [Suspect]
     Dosage: 945 MG, QD, INTRA AMNIOTIC

REACTIONS (3)
  - DEEP VEIN THROMBOSIS [None]
  - HAEMATURIA [None]
  - URINARY TRACT INFECTION [None]
